FAERS Safety Report 20217833 (Version 1)
Quarter: 2021Q4

REPORT INFORMATION
  Report Type: Spontaneous
  Country: US (occurrence: US)
  Receive Date: 20211222
  Receipt Date: 20211222
  Transmission Date: 20220303
  Serious: No
  Sender: FDA-Public Use
  Company Number: US-BioHaven Pharmaceuticals-2021BHV000373

PATIENT
  Age: 57 Year
  Sex: Female
  Weight: 93.524 kg

DRUGS (3)
  1. NURTEC ODT [Suspect]
     Active Substance: RIMEGEPANT SULFATE
     Indication: Migraine
     Route: 060
     Dates: start: 20210817, end: 20210817
  2. GABAPENTIN [Concomitant]
     Active Substance: GABAPENTIN
     Indication: Fibromyalgia
  3. GABAPENTIN [Concomitant]
     Active Substance: GABAPENTIN

REACTIONS (2)
  - Pruritus [Recovered/Resolved]
  - Rash vesicular [Recovered/Resolved]

NARRATIVE: CASE EVENT DATE: 20210818
